FAERS Safety Report 5326084-4 (Version None)
Quarter: 2007Q2

REPORT INFORMATION
  Report Type: 
  Country: None (occurrence: None)
  Receive Date: 20070516
  Receipt Date: 20070309
  Transmission Date: 20071010
  Serious: Yes (Other)
  Sender: FDA-Public Use
  Company Number: GB-JNJFOC-20061200316

PATIENT
  Sex: Female
  Weight: 71 kg

DRUGS (5)
  1. CONCERTA [Suspect]
     Indication: ATTENTION DEFICIT/HYPERACTIVITY DISORDER
     Route: 048
  2. TOPIRAMATE [Suspect]
     Indication: EPILEPSY
     Route: 048
  3. TEGRETOL [Concomitant]
     Indication: EPILEPSY
     Route: 048
  4. SALBUTAMOL [Concomitant]
     Indication: ASTHMA
     Route: 065
  5. SEREVENT [Concomitant]
     Route: 065

REACTIONS (1)
  - CHOLESTASIS OF PREGNANCY [None]
